FAERS Safety Report 10749815 (Version 4)
Quarter: 2015Q3

REPORT INFORMATION
  Report Type: Spontaneous
  Country: US (occurrence: US)
  Receive Date: 20150129
  Receipt Date: 20150827
  Transmission Date: 20151125
  Serious: Yes (Other)
  Sender: FDA-Public Use
  Company Number: US-GLAXOSMITHKLINE-US2015GSK010457

PATIENT
  Sex: Female

DRUGS (2)
  1. PROMACTA [Suspect]
     Active Substance: ELTROMBOPAG OLAMINE
     Dosage: 50 MG, UNK
  2. PROMACTA [Suspect]
     Active Substance: ELTROMBOPAG OLAMINE
     Indication: PLATELET COUNT DECREASED
     Dosage: 25 MG, U
     Dates: start: 2009

REACTIONS (7)
  - Nervousness [Unknown]
  - Incorrect dosage administered [Unknown]
  - Adverse event [Unknown]
  - Hypoacusis [Unknown]
  - Cataract operation [Unknown]
  - Deafness [Not Recovered/Not Resolved]
  - Osteopenia [Not Recovered/Not Resolved]
